FAERS Safety Report 9652815 (Version 2)
Quarter: 2013Q4

REPORT INFORMATION
  Report Type: Spontaneous
  Country: US (occurrence: US)
  Receive Date: 20131029
  Receipt Date: 20131105
  Transmission Date: 20140711
  Serious: No
  Sender: FDA-Public Use
  Company Number: US-TEVA-441372USA

PATIENT
  Age: 23 Year
  Sex: Female
  Weight: 45.4 kg

DRUGS (3)
  1. PLAN B ONE-STEP [Suspect]
     Indication: POST COITAL CONTRACEPTION
     Dosage: 1.5 MILLIGRAM DAILY;
     Route: 048
     Dates: start: 20131024, end: 20131024
  2. VITAMINS [Concomitant]
     Indication: NUTRITIONAL SUPPLEMENTATION
  3. ALEVE [Concomitant]
     Indication: HEADACHE

REACTIONS (2)
  - Photophobia [Recovered/Resolved]
  - Mydriasis [Recovered/Resolved]
